FAERS Safety Report 14176558 (Version 3)
Quarter: 2018Q1

REPORT INFORMATION
  Report Type: Spontaneous
  Country: MX (occurrence: MX)
  Receive Date: 20171110
  Receipt Date: 20180115
  Transmission Date: 20180508
  Serious: Yes (Other)
  Sender: FDA-Public Use
  Company Number: MX-BEH-2017084941

PATIENT
  Age: 5 Year
  Sex: Female
  Weight: 16 kg

DRUGS (11)
  1. HIGLOBIN [Suspect]
     Active Substance: HUMAN IMMUNOGLOBULIN G
     Indication: IMMUNOMODULATORY THERAPY
     Dosage: 15 G, TOT
     Route: 042
     Dates: start: 20171010, end: 20171010
  2. METOTREXATE [Concomitant]
     Active Substance: METHOTREXATE SODIUM
     Indication: IMMUNOSUPPRESSANT DRUG THERAPY
     Dosage: 15 MG/M2, UNK
     Route: 048
     Dates: start: 20160912, end: 20171007
  3. RANITIDINE. [Concomitant]
     Active Substance: RANITIDINE
     Indication: PROPHYLAXIS
     Dosage: 2 MG/KG, QD
     Route: 048
     Dates: start: 20160912
  4. FLUTICASONE. [Concomitant]
     Active Substance: FLUTICASONE
     Indication: ANTIINFLAMMATORY THERAPY
     Dosage: 2 DF, BID
     Route: 055
     Dates: start: 20171007
  5. CLOPIDOGREL [Concomitant]
     Active Substance: CLOPIDOGREL BISULFATE
     Indication: THROMBOSIS PROPHYLAXIS
  6. ASA [Concomitant]
     Active Substance: ASPIRIN
     Indication: THROMBOSIS PROPHYLAXIS
     Dosage: 50 MG, QD
     Route: 048
     Dates: start: 20160306
  7. CLORHEXIDINE AND CETRIMIDE AQUEOS IRRIG. [Concomitant]
     Indication: ANTI-INFECTIVE THERAPY
     Dosage: EACH 12 HRS
     Route: 048
     Dates: start: 20171007
  8. FOLIC ACID. [Concomitant]
     Active Substance: FOLIC ACID
     Indication: IMMUNOSUPPRESSANT DRUG THERAPY
     Dosage: 5 MG, TIW
     Route: 048
     Dates: start: 20160912, end: 20171007
  9. METHYLPREDNISOLONE. [Concomitant]
     Active Substance: METHYLPREDNISOLONE
     Indication: IMMUNOSUPPRESSANT DRUG THERAPY
     Dosage: 30 MG/KG, QD
     Route: 042
     Dates: start: 20171009, end: 20171011
  10. PREDNISONE. [Concomitant]
     Active Substance: PREDNISONE
     Indication: IMMUNOSUPPRESSANT DRUG THERAPY
     Dosage: 15 MG, QD
     Route: 048
     Dates: start: 20171012
  11. CYCLOPHOSPHAMIDE. [Concomitant]
     Active Substance: CYCLOPHOSPHAMIDE
     Indication: IMMUNOSUPPRESSANT DRUG THERAPY
     Dosage: 45 MG, UNK
     Route: 042
     Dates: start: 20160306, end: 20160806

REACTIONS (1)
  - Bradycardia [Recovered/Resolved]

NARRATIVE: CASE EVENT DATE: 20171010
